FAERS Safety Report 5047297-5 (Version None)
Quarter: 2006Q3

REPORT INFORMATION
  Report Type: 
  Country: None (occurrence: None)
  Receive Date: 20060703
  Receipt Date: 20060620
  Transmission Date: 20061208
  Serious: Yes (Other)
  Sender: FDA-Public Use
  Company Number: DEU-2006-0002278

PATIENT
  Age: 48 Year
  Sex: Male
  Weight: 122 kg

DRUGS (3)
  1. OXY CR TAB 10 MG (OXY CR TAB 10 MG) (OXYCODONE HYDROCHLORIDE) PROLONGE [Suspect]
     Indication: PAIN
     Dosage: 10 MG, BID, ORAL
     Route: 048
     Dates: start: 20051102, end: 20051104
  2. TRAMADOL OR PROLONGED-RELEASE TABLET [Concomitant]
  3. AMITRIPTYLINE (AMITRIPTYLINE) [Concomitant]

REACTIONS (2)
  - ANXIETY [None]
  - MENTAL DISORDER [None]
